FAERS Safety Report 12211164 (Version 1)
Quarter: 2016Q1

REPORT INFORMATION
  Report Type: Spontaneous
  Country: US (occurrence: None)
  Receive Date: 20160324
  Receipt Date: 20160324
  Transmission Date: 20160526
  Serious: Yes (Hospitalization)
  Sender: FDA-Public Use
  Company Number: None

PATIENT

DRUGS (14)
  1. CHLOROTHIAZIDE. [Concomitant]
     Active Substance: CHLOROTHIAZIDE
  2. MIDAZOLAM [Concomitant]
     Active Substance: MIDAZOLAM\MIDAZOLAM HYDROCHLORIDE
  3. INFUVITE PEDIATRIC [Suspect]
     Active Substance: .ALPHA.-TOCOPHEROL ACETATE\ASCORBIC ACID\BIOTIN\CHOLECALCIFEROL\CYANOCOBALAMIN\DEXPANTHENOL\FOLIC ACID\NIACINAMIDE\PHYTONADIONE\PYRIDOXINE\RIBOFLAVIN\THIAMINE\VITAMIN A
  4. DEXAMETHASONE. [Concomitant]
     Active Substance: DEXAMETHASONE
  5. ARGININE [Concomitant]
     Active Substance: ARGININE
  6. ROCURONIUM [Concomitant]
     Active Substance: ROCURONIUM BROMIDE
  7. ALBUTEROL. [Concomitant]
     Active Substance: ALBUTEROL
  8. FENTANYL. [Concomitant]
     Active Substance: FENTANYL
  9. KETAMINE [Concomitant]
     Active Substance: KETAMINE
  10. MILRINONE [Concomitant]
     Active Substance: MILRINONE
  11. ATROPINE. [Concomitant]
     Active Substance: ATROPINE
  12. FUROSEMIDE. [Concomitant]
     Active Substance: FUROSEMIDE
  13. PANTOBARBITAL [Concomitant]
  14. VECURONIUM [Concomitant]
     Active Substance: VECURONIUM BROMIDE

REACTIONS (3)
  - Wheezing [None]
  - Rash [None]
  - Stridor [None]
